FAERS Safety Report 7487612-6 (Version None)
Quarter: 2011Q2

REPORT INFORMATION
  Report Type: 
  Country: None (occurrence: None)
  Receive Date: 20110518
  Receipt Date: 20110512
  Transmission Date: 20111010
  Serious: Yes (Other)
  Sender: FDA-Public Use
  Company Number: US-SANOFI-AVENTIS-2011SA015808

PATIENT
  Age: 87 Year
  Sex: Female
  Weight: 48.53 kg

DRUGS (12)
  1. PRILOSEC [Concomitant]
     Dates: start: 20070101, end: 20110419
  2. NORTRIPTYLINE HCL [Concomitant]
     Dates: start: 20060901, end: 20110419
  3. SYNTHROID [Concomitant]
  4. WARFARIN SODIUM [Concomitant]
  5. CALCIUM W/MINERALS/VITAMIN D NOS [Concomitant]
     Indication: OSTEOPOROSIS
     Dates: start: 20060901
  6. MULTAQ [Suspect]
     Indication: ATRIAL FIBRILLATION
     Route: 048
     Dates: start: 20091107, end: 20110304
  7. CARVEDILOL [Concomitant]
     Indication: CORONARY ARTERY DISEASE
     Dates: start: 20091101
  8. LORAZEPAM [Concomitant]
     Dates: start: 20060901, end: 20110411
  9. PLAVIX [Concomitant]
     Indication: CORONARY ARTERY DISEASE
     Route: 048
     Dates: start: 20080901, end: 20110411
  10. PRAVASTATIN [Concomitant]
     Dates: start: 20080101
  11. ASPIRIN [Concomitant]
     Indication: CORONARY ARTERY DISEASE
     Dates: start: 20080901
  12. TAMSULOSIN HCL [Concomitant]
     Indication: OSTEOPOROSIS
     Dates: start: 20060901

REACTIONS (3)
  - MALAISE [None]
  - ELECTROCARDIOGRAM PR PROLONGATION [None]
  - ATRIAL FIBRILLATION [None]
